FAERS Safety Report 11186874 (Version 1)
Quarter: 2015Q2

REPORT INFORMATION
  Report Type: Spontaneous
  Country: FR (occurrence: FR)
  Receive Date: 20150614
  Receipt Date: 20150614
  Transmission Date: 20150821
  Serious: Yes (Hospitalization)
  Sender: FDA-Public Use
  Company Number: FR-TEVA-569259ISR

PATIENT
  Age: 45 Year
  Sex: Male

DRUGS (2)
  1. AZILECT [Suspect]
     Active Substance: RASAGILINE MESYLATE
     Route: 048
     Dates: start: 201101
  2. SERETIDE [Suspect]
     Active Substance: FLUTICASONE FUROATE\SALMETEROL XINAFOATE
     Dosage: 1DF = FLUTICASONE PROPIONATE 500 MICROGRAMS + SALMETEROL 50 MICROGRAMS
     Route: 055
     Dates: start: 2012

REACTIONS (1)
  - Myocardial infarction [Recovered/Resolved]

NARRATIVE: CASE EVENT DATE: 20150326
